FAERS Safety Report 5963526-5 (Version None)
Quarter: 2008Q4

REPORT INFORMATION
  Report Type: 
  Country: None (occurrence: None)
  Receive Date: 20081120
  Receipt Date: 20081105
  Transmission Date: 20090506
  Serious: Yes (Death, Hospitalization)
  Sender: FDA-Public Use
  Company Number: CFX20080011

PATIENT
  Age: 30 Year
  Sex: Male

DRUGS (1)
  1. CIPROFLOXACIN [Suspect]
     Indication: URINARY TRACT INFECTION
     Dosage: 1 GRAM/DAY ORAL
     Route: 048

REACTIONS (23)
  - BLADDER DISORDER [None]
  - BRAIN OEDEMA [None]
  - BUNDLE BRANCH BLOCK RIGHT [None]
  - CARDIAC FAILURE ACUTE [None]
  - CARDIO-RESPIRATORY ARREST [None]
  - CEREBELLAR HAEMORRHAGE [None]
  - CEREBRAL HAEMORRHAGE [None]
  - CONFUSIONAL STATE [None]
  - DEHYDRATION [None]
  - ELECTROCARDIOGRAM REPOLARISATION ABNORMALITY [None]
  - HAEMOLYTIC ANAEMIA [None]
  - HEPATIC HAEMORRHAGE [None]
  - HYPOPERFUSION [None]
  - LIVER DISORDER [None]
  - MYOCARDIAL HAEMORRHAGE [None]
  - MYOCARDIAL OEDEMA [None]
  - OEDEMA [None]
  - PULMONARY HAEMORRHAGE [None]
  - PULMONARY OEDEMA [None]
  - RENAL HAEMORRHAGE [None]
  - THROMBOCYTOPENIA [None]
  - THROMBOTIC THROMBOCYTOPENIC PURPURA [None]
  - URINARY BLADDER HAEMORRHAGE [None]
